FAERS Safety Report 6885881-4 (Version None)
Quarter: 2010Q3

REPORT INFORMATION
  Report Type: 
  Country: None (occurrence: None)
  Receive Date: 20100729
  Receipt Date: 20080605
  Transmission Date: 20110219
  Serious: No
  Sender: FDA-Public Use
  Company Number: US-PFIZER INC-2007103398

PATIENT
  Sex: Female
  Weight: 64 kg

DRUGS (9)
  1. CELEBREX [Suspect]
     Indication: ARTHRALGIA
     Route: 048
     Dates: start: 20070101
  2. LASIX [Suspect]
     Indication: SWELLING
     Dates: start: 20070101, end: 20070101
  3. NEXIUM [Concomitant]
  4. ZYRTEC-D 12 HOUR [Concomitant]
  5. LEVOTHYROXINE SODIUM [Concomitant]
  6. CHONDROITIN SULFATE [Concomitant]
  7. SPIRONOLACTONE [Concomitant]
  8. VITAMINS [Concomitant]
  9. ACETYLSALICYLIC ACID SRT [Concomitant]

REACTIONS (3)
  - RASH [None]
  - SWELLING [None]
  - WEIGHT INCREASED [None]
